FAERS Safety Report 4276298-X (Version None)
Quarter: 2004Q1

REPORT INFORMATION
  Report Type: 
  Country: None (occurrence: None)
  Receive Date: 20040116
  Receipt Date: 20040105
  Transmission Date: 20041129
  Serious: Yes (Hospitalization)
  Sender: FDA-Public Use
  Company Number: US-SHR-03-018778

PATIENT
  Age: 36 Year
  Sex: Female
  Weight: 73.9 kg

DRUGS (10)
  1. BETASERON [Suspect]
     Indication: MULTIPLE SCLEROSIS
     Dosage: 0.8 ML (213 MCG), EVERY 2 D, SUBCUTANEOUS
     Route: 058
     Dates: start: 20030224, end: 20030925
  2. NERVE BLOCK TRIGGER POINT INJECTIONS [Concomitant]
  3. DITROPAN XL [Concomitant]
  4. LOMOTIL [Concomitant]
  5. PROTONIX ^PHARMACIA^ (PANTOPRAZOLE) [Concomitant]
  6. TYLENOL PM (DIPHENHYDRAMINE) [Concomitant]
  7. VITAMIN B-12 [Concomitant]
  8. ALEVE [Concomitant]
  9. VICODIN [Concomitant]
  10. ZOFRAN / GFR/(ONDANSETRON HYDROCHLORIDE) [Concomitant]

REACTIONS (3)
  - DISEASE RECURRENCE [None]
  - DRUG TOLERANCE DECREASED [None]
  - MIGRAINE [None]
